FAERS Safety Report 7970351-2 (Version None)
Quarter: 2011Q4

REPORT INFORMATION
  Report Type: 
  Country: None (occurrence: None)
  Receive Date: 20111122
  Receipt Date: 20110310
  Transmission Date: 20120403
  Serious: No
  Sender: FDA-Public Use
  Company Number: PHHY2011US06548

PATIENT
  Age: 61 Year
  Sex: Female
  Weight: 86.2 kg

DRUGS (11)
  1. BENADRYL (AMMONIUM CHLORIDE, DIPHENHYDRAMINE HYDROCHLORIDE, MENTHOL, S [Concomitant]
  2. LEXAPRO [Concomitant]
  3. BACLOFEN [Concomitant]
  4. HYDROCODONE BITARTRATE [Concomitant]
  5. AMLODIPINE [Concomitant]
  6. BISOPROLOL FUMARATE [Concomitant]
  7. GABAPENTIN [Concomitant]
  8. APAP (PARACETAMOL) [Concomitant]
  9. GILENYA [Suspect]
     Indication: MULTIPLE SCLEROSIS
     Dosage: 0.5 MG, QD, ORAL
     Route: 048
  10. XANAX [Concomitant]
  11. TRAZODONE HCL [Concomitant]

REACTIONS (6)
  - PAIN [None]
  - ASTHENIA [None]
  - MYALGIA [None]
  - FEELING OF BODY TEMPERATURE CHANGE [None]
  - CHILLS [None]
  - VISION BLURRED [None]
